FAERS Safety Report 7474899-9 (Version None)
Quarter: 2011Q2

REPORT INFORMATION
  Report Type: 
  Country: None (occurrence: None)
  Receive Date: 20110512
  Receipt Date: 20110506
  Transmission Date: 20111010
  Serious: Yes (Hospitalization)
  Sender: FDA-Public Use
  Company Number: US-SANOFI-AVENTIS-2011SA028252

PATIENT
  Age: 83 Year
  Sex: Female

DRUGS (6)
  1. HUMALOG [Concomitant]
  2. GLIPIZIDE [Concomitant]
  3. METOPROLOL SUCCINATE [Concomitant]
  4. COUMADIN [Concomitant]
  5. LANTUS [Suspect]
     Indication: TYPE 2 DIABETES MELLITUS
     Dosage: 25-30 UNITS
     Route: 058
  6. OXYGEN [Concomitant]

REACTIONS (6)
  - ATRIAL FIBRILLATION [None]
  - DECREASED APPETITE [None]
  - EYE DISORDER [None]
  - PRODUCT QUALITY ISSUE [None]
  - DRUG INEFFECTIVE [None]
  - BLOOD GLUCOSE INCREASED [None]
